FAERS Safety Report 13447078 (Version 1)
Quarter: 2017Q2

REPORT INFORMATION
  Report Type: Spontaneous
  Country: US (occurrence: US)
  Receive Date: 20170414
  Receipt Date: 20170414
  Transmission Date: 20170830
  Serious: Yes (Death)
  Sender: FDA-Public Use
  Company Number: None

PATIENT
  Age: 84 Year
  Sex: Female

DRUGS (9)
  1. SYNTHROID [Concomitant]
     Active Substance: LEVOTHYROXINE SODIUM
  2. ZOCOR [Concomitant]
     Active Substance: SIMVASTATIN
  3. ATENOLOL. [Concomitant]
     Active Substance: ATENOLOL
  4. CALCIUM [Concomitant]
     Active Substance: CALCIUM
  5. METFORMIN [Concomitant]
     Active Substance: METFORMIN HYDROCHLORIDE
  6. ARIMIDEX [Concomitant]
     Active Substance: ANASTROZOLE
  7. ZOLEDRONIC ACID 4MG/5ML SDV PAR STERILE [Suspect]
     Active Substance: ZOLEDRONIC ACID
     Indication: OSTEOPOROSIS
     Dosage: 4MG Q 3 MONTHS IV
     Route: 042
     Dates: start: 20160503
  8. HITAMINE [Concomitant]
  9. ROBINUL [Concomitant]
     Active Substance: GLYCOPYRROLATE

REACTIONS (1)
  - Death [None]
